FAERS Safety Report 10678102 (Version 4)
Quarter: 2015Q3

REPORT INFORMATION
  Report Type: Spontaneous
  Country: US (occurrence: US)
  Receive Date: 20141229
  Receipt Date: 20150722
  Transmission Date: 20151125
  Serious: Yes (Other)
  Sender: FDA-Public Use
  Company Number: US-AUROBINDO-AUR-APL-2014-13323

PATIENT
  Sex: Female

DRUGS (60)
  1. NEXIUM [Suspect]
     Active Substance: ESOMEPRAZOLE MAGNESIUM
     Indication: GASTROOESOPHAGEAL REFLUX DISEASE
     Dosage: 2 DF, TWO TIMES A DAY
     Route: 048
     Dates: start: 20141205
  2. NIFEDIPINE. [Suspect]
     Active Substance: NIFEDIPINE
     Indication: PRODUCT USED FOR UNKNOWN INDICATION
     Dosage: UNK
     Route: 065
  3. ZANTAC [Suspect]
     Active Substance: RANITIDINE HYDROCHLORIDE
     Indication: PRODUCT USED FOR UNKNOWN INDICATION
     Dosage: UNK
     Route: 065
  4. MSM [Suspect]
     Active Substance: DIMETHYL SULFONE
     Indication: PRODUCT USED FOR UNKNOWN INDICATION
     Dosage: UNK
     Route: 065
  5. NAC                                /00082801/ [Concomitant]
     Indication: LIVER DISORDER
  6. LUTEIN                             /01638501/ [Concomitant]
     Active Substance: LUTEIN
     Indication: EYE DISORDER
     Dosage: 23 MG, DAILY
     Route: 065
     Dates: start: 2014
  7. PRILOSEC [Interacting]
     Active Substance: OMEPRAZOLE MAGNESIUM
     Indication: ABDOMINAL PAIN UPPER
     Dosage: UNK
     Route: 065
     Dates: start: 2002
  8. FLAXSEED [Concomitant]
     Active Substance: FLAX SEED
     Indication: MEDICAL DIET
     Dosage: UNK
     Route: 065
  9. BROMELAIN JDOLPH [Concomitant]
     Indication: HYPERSENSITIVITY
     Dosage: 500 MG, UNK
     Route: 065
     Dates: start: 2012
  10. VITAMIN C [Concomitant]
     Active Substance: ASCORBIC ACID
     Indication: GENERAL SYMPTOM
     Dosage: 500 MG, TWO TIMES A DAY
     Route: 065
     Dates: start: 2002
  11. HYDROCHLOROTHIAZIDE. [Concomitant]
     Active Substance: HYDROCHLOROTHIAZIDE
     Indication: PRODUCT USED FOR UNKNOWN INDICATION
     Dosage: UNK
     Route: 065
  12. UBIQUINOL [Concomitant]
     Indication: PRODUCT USED FOR UNKNOWN INDICATION
     Dosage: UNK
     Route: 065
  13. NEXIUM [Suspect]
     Active Substance: ESOMEPRAZOLE MAGNESIUM
     Indication: HIATUS HERNIA
     Dosage: 20 MG, UNK
     Route: 048
     Dates: start: 2004, end: 20141205
  14. PERCOCET [Suspect]
     Active Substance: ACETAMINOPHEN\OXYCODONE HYDROCHLORIDE
     Indication: PRODUCT USED FOR UNKNOWN INDICATION
     Dosage: UNK
     Route: 065
  15. CODEINE [Suspect]
     Active Substance: CODEINE
     Indication: PRODUCT USED FOR UNKNOWN INDICATION
     Dosage: UNK
     Route: 065
  16. ACIPHEX [Suspect]
     Active Substance: RABEPRAZOLE SODIUM
     Indication: PRODUCT USED FOR UNKNOWN INDICATION
     Dosage: UNK
     Route: 065
  17. BERBERINE [Concomitant]
     Active Substance: BERBERINE
     Indication: DIABETES MELLITUS
     Dosage: 1000 MG, DAILY
     Route: 065
  18. EXCEDRIN                           /00509701/ [Concomitant]
     Indication: PAIN
     Dosage: UNK
     Route: 065
  19. ACETAMINOPHEN. [Concomitant]
     Active Substance: ACETAMINOPHEN
     Indication: PAIN
     Dosage: UNK
     Route: 065
  20. TUMS [Concomitant]
     Active Substance: CALCIUM CARBONATE
     Indication: ABDOMINAL DISCOMFORT
     Dosage: UNK
     Route: 065
     Dates: start: 2014
  21. TURMERIC                           /01079602/ [Concomitant]
     Indication: GENERAL SYMPTOM
     Dosage: 500 MG, TWO TIMES A DAY
     Route: 065
     Dates: start: 2009
  22. GLYBURIDE. [Suspect]
     Active Substance: GLYBURIDE
     Indication: PRODUCT USED FOR UNKNOWN INDICATION
     Dosage: UNK
     Route: 065
  23. VITAMIN B 1-6-12 [Suspect]
     Active Substance: CYANOCOBALAMIN\PYRIDOXINE\THIAMINE
     Indication: GENERAL SYMPTOM
     Dosage: 2000 MG, DAILY
     Route: 065
     Dates: start: 2002
  24. ESTROGEN NOS [Suspect]
     Active Substance: ESTROGENS
     Indication: PRODUCT USED FOR UNKNOWN INDICATION
     Dosage: UNK
     Route: 065
  25. LYSINE [Concomitant]
     Active Substance: LYSINE
     Indication: BONE DISORDER
     Dosage: 600 MG, DAILY
     Route: 065
     Dates: start: 2002
  26. LYSINE [Concomitant]
     Active Substance: LYSINE
     Indication: HERPES VIRUS INFECTION
  27. NAC                                /00082801/ [Concomitant]
     Indication: DIABETES MELLITUS
     Dosage: 600 MG, DAILY
     Route: 065
     Dates: start: 2009
  28. CHROMIUM [Concomitant]
     Active Substance: CHROMIC CHLORIDE\CHROMIUM
     Indication: DIABETES MELLITUS
     Dosage: 400 MG, UNK
     Route: 065
  29. VITAMIN K                          /07504001/ [Concomitant]
     Indication: GENERAL SYMPTOM
     Dosage: 150 MG, DAILY
     Route: 065
     Dates: start: 2002
  30. METFORMIN [Suspect]
     Active Substance: METFORMIN HYDROCHLORIDE
     Indication: PRODUCT USED FOR UNKNOWN INDICATION
     Dosage: UNK
     Route: 065
  31. LISINOPRIL TABLET [Suspect]
     Active Substance: LISINOPRIL
     Indication: BLOOD PRESSURE MEASUREMENT
     Dosage: UNK
     Route: 065
  32. IBUPROFEN. [Suspect]
     Active Substance: IBUPROFEN
     Indication: PRODUCT USED FOR UNKNOWN INDICATION
     Dosage: UNK
     Route: 065
  33. PEPCID [Suspect]
     Active Substance: FAMOTIDINE
     Indication: PRODUCT USED FOR UNKNOWN INDICATION
     Dosage: UNK
     Route: 065
  34. CARNOSINE [Concomitant]
     Active Substance: CARNOSINE
     Indication: NERVOUS SYSTEM DISORDER
     Dosage: 500 MG, DAILY
     Route: 065
     Dates: start: 2012
  35. QUERCETIN [Concomitant]
     Active Substance: QUERCETIN
     Indication: HYPERSENSITIVITY
     Dosage: 650 MG, DAILY
     Route: 065
     Dates: start: 2009
  36. BIOTIN [Concomitant]
     Active Substance: BIOTIN
     Indication: DIABETES MELLITUS
     Dosage: 500 MG, DAILY
     Route: 065
     Dates: start: 2012
  37. BIOTIN [Concomitant]
     Active Substance: BIOTIN
     Indication: HAIR DISORDER
  38. ZINC [Concomitant]
     Active Substance: ZINC\ZINC CHLORIDE
     Indication: GENERAL SYMPTOM
     Dosage: 50 MG, DAILY
     Route: 065
     Dates: start: 2009
  39. POTASSIUM [Concomitant]
     Active Substance: POTASSIUM
     Indication: GENERAL SYMPTOM
     Dosage: 100 MG, TWO TIMES A DAY
     Route: 065
     Dates: start: 2002
  40. INSULIN [Concomitant]
     Active Substance: INSULIN NOS
     Indication: PRODUCT USED FOR UNKNOWN INDICATION
     Dosage: UNK
     Route: 065
  41. LEVAQUIN [Suspect]
     Active Substance: LEVOFLOXACIN
     Indication: PRODUCT USED FOR UNKNOWN INDICATION
     Dosage: UNK
     Route: 065
  42. ZELNORM [Suspect]
     Active Substance: TEGASEROD MALEATE
     Indication: PRODUCT USED FOR UNKNOWN INDICATION
     Dosage: UNK
     Route: 065
  43. PERLUTEX [Concomitant]
     Indication: BONE DISORDER
     Dosage: 500 MG, TWO TIMES A DAY
     Route: 065
     Dates: start: 2009
  44. FISH OIL [Concomitant]
     Active Substance: FISH OIL
     Indication: INFLAMMATION
     Dosage: 1000 MG, DAILY
     Route: 065
     Dates: start: 2014
  45. VITAMIN B1 [Concomitant]
     Active Substance: THIAMINE HYDROCHLORIDE
     Indication: NEUROPATHY PERIPHERAL
     Dosage: UNK
     Route: 065
     Dates: start: 2004
  46. VITAMIN B COMPLEX                  /01327201/ [Concomitant]
     Indication: GENERAL SYMPTOM
     Dosage: 1 DF, DAILY
     Route: 065
     Dates: start: 2002
  47. MAGNESIUM [Concomitant]
     Active Substance: MAGNESIUM
     Indication: GENERAL SYMPTOM
     Dosage: 600 MG, DAILY
     Route: 065
     Dates: start: 1998
  48. NOVOLIN N [Concomitant]
     Active Substance: INSULIN HUMAN
     Indication: DIABETES MELLITUS
     Dosage: 1-2 TIMES DAILY,15-24 UNITS, SLIDING SCALE
     Route: 065
  49. PENICILLIN V POTASSIUM. [Suspect]
     Active Substance: PENICILLIN V POTASSIUM
     Indication: PRODUCT USED FOR UNKNOWN INDICATION
     Dosage: UNK
     Route: 065
  50. HUMALOG [Suspect]
     Active Substance: INSULIN LISPRO
     Indication: PRODUCT USED FOR UNKNOWN INDICATION
     Dosage: UNK
     Route: 065
  51. MORPHINE [Suspect]
     Active Substance: MORPHINE
     Indication: PRODUCT USED FOR UNKNOWN INDICATION
     Dosage: UNK
     Route: 065
  52. PREVACID [Suspect]
     Active Substance: LANSOPRAZOLE
     Indication: PRODUCT USED FOR UNKNOWN INDICATION
     Dosage: UNK
     Route: 065
  53. COZAAR [Suspect]
     Active Substance: LOSARTAN POTASSIUM
     Indication: PRODUCT USED FOR UNKNOWN INDICATION
     Dosage: UNK
     Route: 065
  54. PANTETHINE [Concomitant]
     Active Substance: PANTETHINE
     Indication: BLOOD CHOLESTEROL
     Dosage: 300 MG, TWO TIMES A DAY
     Route: 065
     Dates: start: 2009
  55. CITRAFEN [Suspect]
     Active Substance: TIQUIZIUM BROMIDE
     Indication: PRODUCT USED FOR UNKNOWN INDICATION
     Dosage: UNK
     Route: 065
  56. LANTUS [Suspect]
     Active Substance: INSULIN GLARGINE
     Indication: PRODUCT USED FOR UNKNOWN INDICATION
     Dosage: UNK
     Route: 065
  57. BENADRYL [Suspect]
     Active Substance: DIPHENHYDRAMINE HYDROCHLORIDE
     Indication: PRODUCT USED FOR UNKNOWN INDICATION
     Dosage: UNK
     Route: 065
  58. CELEBREX [Interacting]
     Active Substance: CELECOXIB
     Indication: PRODUCT USED FOR UNKNOWN INDICATION
     Dosage: UNK
     Route: 065
  59. QUERCETIN [Concomitant]
     Active Substance: QUERCETIN
     Indication: INFLAMMATION
  60. VITAMIN D3 [Concomitant]
     Active Substance: CHOLECALCIFEROL
     Indication: GENERAL SYMPTOM
     Dosage: 7000 MG, DAILY
     Route: 065
     Dates: start: 2002

REACTIONS (19)
  - Abdominal discomfort [Recovered/Resolved]
  - Bladder disorder [Recovered/Resolved]
  - Micturition urgency [Recovered/Resolved]
  - Sleep disorder due to a general medical condition [Unknown]
  - Arthritis [Unknown]
  - Cystitis [Unknown]
  - Blood zinc decreased [Unknown]
  - Fatigue [Unknown]
  - Condition aggravated [Unknown]
  - Diabetes mellitus [Unknown]
  - Rash macular [Unknown]
  - Barrett^s oesophagus [Unknown]
  - Drug hypersensitivity [Unknown]
  - Drug ineffective [Unknown]
  - Product physical issue [Unknown]
  - Adverse drug reaction [Recovered/Resolved]
  - Intentional product misuse [Unknown]
  - Femur fracture [Unknown]
  - Blood magnesium decreased [Unknown]

NARRATIVE: CASE EVENT DATE: 2002
